FAERS Safety Report 4872484-6 (Version None)
Quarter: 2006Q1

REPORT INFORMATION
  Report Type: 
  Country: None (occurrence: None)
  Receive Date: 20060104
  Receipt Date: 20051226
  Transmission Date: 20060701
  Serious: Yes (Hospitalization)
  Sender: FDA-Public Use
  Company Number: KR-SANOFI-SYNTHELABO-A01200509078

PATIENT
  Sex: Male
  Weight: 68 kg

DRUGS (7)
  1. ELOXATIN [Suspect]
     Dosage: UNKNOWN
     Route: 042
     Dates: start: 20051001, end: 20051001
  2. FLUOROURACIL [Suspect]
     Dosage: UNKNOWN
     Route: 042
     Dates: start: 20051001, end: 20051001
  3. LEUCOVORIN CALCIUM [Suspect]
     Route: 042
     Dates: start: 20051001, end: 20051001
  4. OMEPRAZOLE [Concomitant]
     Route: 048
     Dates: start: 20051110, end: 20051118
  5. GELMA [Concomitant]
     Route: 048
     Dates: start: 20051110, end: 20051118
  6. MOTILIUM-M [Concomitant]
     Route: 048
     Dates: start: 20051110, end: 20051118
  7. AZINTAL [Concomitant]
     Route: 048
     Dates: start: 20051110, end: 20051118

REACTIONS (4)
  - DECREASED APPETITE [None]
  - DEHYDRATION [None]
  - RENAL IMPAIRMENT [None]
  - TUMOUR HAEMORRHAGE [None]
